FAERS Safety Report 7755677-X (Version None)
Quarter: 2011Q3

REPORT INFORMATION
  Report Type: 
  Country: None (occurrence: None)
  Receive Date: 20110916
  Receipt Date: 20110718
  Transmission Date: 20111222
  Serious: No
  Sender: FDA-Public Use
  Company Number: US-MYLANLABS-2011S1015095

PATIENT
  Age: 12 Month
  Sex: Female

DRUGS (1)
  1. ROCURONIUM BROMIDE [Suspect]
     Indication: SEDATION
     Route: 042
     Dates: start: 20110715, end: 20110715

REACTIONS (2)
  - DRUG EFFECT DECREASED [None]
  - MUSCLE TWITCHING [None]
